FAERS Safety Report 9521297 (Version 1)
Quarter: 2013Q3

REPORT INFORMATION
  Report Type: Spontaneous
  Country: FR (occurrence: FR)
  Receive Date: 20130913
  Receipt Date: 20130913
  Transmission Date: 20140515
  Serious: Yes (Life-Threatening, Hospitalization, Disabling)
  Sender: FDA-Public Use
  Company Number: FR-JNJFOC-20130903441

PATIENT
  Age: 55 Year
  Sex: Male

DRUGS (3)
  1. REMICADE [Suspect]
     Indication: PSORIASIS
     Route: 042
     Dates: start: 200704
  2. HUMIRA [Suspect]
     Indication: PSORIASIS
     Dosage: 2 AND HALF YEARS PRIOR TO 2006 (UNTIL 2006)
     Route: 058
     Dates: end: 2006
  3. ENBREL [Suspect]
     Indication: PSORIASIS
     Dosage: 2 AND HALF YEARS PRIOR TO 2006 (UNTIL 2006)
     Route: 058
     Dates: start: 200604, end: 200704

REACTIONS (1)
  - Bladder cancer stage IV [Unknown]
